FAERS Safety Report 10382676 (Version 2)
Quarter: 2014Q3

REPORT INFORMATION
  Report Type: Spontaneous
  Country: US (occurrence: US)
  Receive Date: 20140813
  Receipt Date: 20140813
  Transmission Date: 20150326
  Serious: Yes (Hospitalization, Other)
  Sender: FDA-Public Use
  Company Number: US-009507513-2008-179132-NL

PATIENT
  Sex: Female
  Weight: 83.9 kg

DRUGS (4)
  1. NORCO [Concomitant]
     Active Substance: ACETAMINOPHEN\HYDROCODONE BITARTRATE
     Indication: ANALGESIC THERAPY
  2. NUVARING [Suspect]
     Active Substance: ETHINYL ESTRADIOL\ETONOGESTREL
     Indication: PREMATURE MENOPAUSE
  3. NUVARING [Suspect]
     Active Substance: ETHINYL ESTRADIOL\ETONOGESTREL
     Indication: MENSTRUAL CYCLE MANAGEMENT
     Dosage: DOSE TEXT: 3 WEEKS PER MONTH, CONTINUING: NO
     Route: 067
     Dates: start: 200703, end: 200709
  4. IBUPROFEN. [Concomitant]
     Active Substance: IBUPROFEN
     Indication: ANALGESIC THERAPY

REACTIONS (8)
  - Electrocardiogram ST-T change [Recovered/Resolved]
  - Deep vein thrombosis [Recovered/Resolved]
  - Off label use [Unknown]
  - Sinus tachycardia [Recovered/Resolved]
  - Pulmonary infarction [Recovered/Resolved]
  - Pulmonary embolism [Recovered/Resolved]
  - Upper limb fracture [Recovered/Resolved]
  - Post thrombotic syndrome [Not Recovered/Not Resolved]

NARRATIVE: CASE EVENT DATE: 20070830
